FAERS Safety Report 25584774 (Version 1)
Quarter: 2025Q3

REPORT INFORMATION
  Report Type: Spontaneous
  Country: IN (occurrence: IN)
  Receive Date: 20250721
  Receipt Date: 20250721
  Transmission Date: 20251020
  Serious: Yes (Death, Hospitalization, Other)
  Sender: ASTELLAS
  Company Number: IN-ASTELLAS-2022US033532

PATIENT
  Age: 32 Year
  Sex: Male

DRUGS (8)
  1. TACROLIMUS [Interacting]
     Active Substance: TACROLIMUS
     Indication: Renal transplant
     Route: 065
     Dates: start: 2019, end: 2022
  2. TACROLIMUS [Interacting]
     Active Substance: TACROLIMUS
     Route: 065
     Dates: start: 2022
  3. ITRACONAZOLE [Interacting]
     Active Substance: ITRACONAZOLE
     Indication: Phaeohyphomycosis
     Route: 065
     Dates: start: 2019, end: 2019
  4. ITRACONAZOLE [Interacting]
     Active Substance: ITRACONAZOLE
     Indication: Fungal skin infection
     Route: 065
     Dates: start: 2022
  5. ITRACONAZOLE [Interacting]
     Active Substance: ITRACONAZOLE
     Indication: Phaeohyphomycosis
  6. ITRACONAZOLE [Interacting]
     Active Substance: ITRACONAZOLE
     Indication: Infection
  7. MYCOPHENOLATE MOFETIL [Concomitant]
     Active Substance: MYCOPHENOLATE MOFETIL
     Indication: Renal transplant
     Route: 065
     Dates: start: 2019, end: 2022
  8. MYCOPHENOLATE MOFETIL [Concomitant]
     Active Substance: MYCOPHENOLATE MOFETIL
     Route: 065
     Dates: start: 2022

REACTIONS (9)
  - Neutropenic sepsis [Fatal]
  - Escherichia bacteraemia [Fatal]
  - Septic shock [Fatal]
  - Phaeohyphomycosis [Recovered/Resolved]
  - Osteomyelitis fungal [Not Recovered/Not Resolved]
  - Infection [Not Recovered/Not Resolved]
  - Complications of transplanted kidney [Recovered/Resolved]
  - Toxicity to various agents [Unknown]
  - Drug interaction [Unknown]

NARRATIVE: CASE EVENT DATE: 20190101
